FAERS Safety Report 10308105 (Version 2)
Quarter: 2014Q3

REPORT INFORMATION
  Report Type: Spontaneous
  Country: US (occurrence: US)
  Receive Date: 20140716
  Receipt Date: 20140716
  Transmission Date: 20150326
  Serious: Yes (Hospitalization, Other)
  Sender: FDA-Public Use
  Company Number: US-009507513-2010SP004854

PATIENT
  Sex: Female
  Weight: 90.72 kg

DRUGS (3)
  1. NUVARING [Suspect]
     Active Substance: ETHINYL ESTRADIOL\ETONOGESTREL
     Indication: MENORRHAGIA
  2. NUVARING [Suspect]
     Active Substance: ETHINYL ESTRADIOL\ETONOGESTREL
     Indication: PREMENSTRUAL SYNDROME
     Route: 067
     Dates: start: 200804, end: 20080728
  3. ADVIL [Concomitant]
     Active Substance: IBUPROFEN
     Indication: HEADACHE
     Dosage: 400 MG, UNKNOWN

REACTIONS (8)
  - Pneumonia [Recovered/Resolved]
  - Depression [Unknown]
  - Amnesia [Unknown]
  - Pulmonary embolism [Recovered/Resolved with Sequelae]
  - Gastritis [Unknown]
  - Arthralgia [Unknown]
  - Off label use [Unknown]
  - Atelectasis [Unknown]

NARRATIVE: CASE EVENT DATE: 20080728
